FAERS Safety Report 15283820 (Version 3)
Quarter: 2018Q4

REPORT INFORMATION
  Report Type: Spontaneous
  Country: DE (occurrence: DE)
  Receive Date: 20180816
  Receipt Date: 20181121
  Transmission Date: 20190204
  Serious: Yes (Hospitalization)
  Sender: FDA-Public Use
  Company Number: PHHY2018DE070719

PATIENT
  Age: 59 Year
  Sex: Female
  Weight: 72.5 kg

DRUGS (13)
  1. PACLITAXEL. [Suspect]
     Active Substance: PACLITAXEL
     Indication: BREAST CANCER
     Dosage: 150 MG, QW
     Route: 042
     Dates: start: 20160421
  2. CAPECITABINE. [Suspect]
     Active Substance: CAPECITABINE
     Indication: BREAST CANCER
     Dosage: 3000 MG, Q3W
     Route: 048
     Dates: start: 20160728, end: 20170810
  3. XELODA [Concomitant]
     Active Substance: CAPECITABINE
     Dosage: 3000 MG, Q3W
     Route: 048
     Dates: start: 20170810
  4. PACLITAXEL. [Suspect]
     Active Substance: PACLITAXEL
     Dosage: 150 MG, QW
     Route: 042
     Dates: start: 20160630
  5. PACLITAXEL. [Suspect]
     Active Substance: PACLITAXEL
     Dosage: SUBSEQUENCT DOSE RECEIVED ON 30/JUN/2016
     Route: 042
     Dates: start: 20160421
  6. BEVACIZUMAB. [Suspect]
     Active Substance: BEVACIZUMAB
     Dosage: SUBSEQUENCT DOSE RECEIVED ON 30/JUN/2016
     Route: 042
     Dates: start: 20160519
  7. BEVACIZUMAB. [Suspect]
     Active Substance: BEVACIZUMAB
     Indication: BREAST CANCER
     Dosage: 720 MG, Q2W
     Route: 042
     Dates: start: 20160630
  8. BEVACIZUMAB. [Suspect]
     Active Substance: BEVACIZUMAB
     Dosage: 720 MG, Q2W
     Route: 042
     Dates: start: 20160519
  9. PREGABALIN. [Concomitant]
     Active Substance: PREGABALIN
     Indication: NEURALGIA
     Dosage: 150 MG, QD
     Route: 048
     Dates: start: 20160411
  10. VITAMIN B12 [Concomitant]
     Active Substance: CYANOCOBALAMIN
     Indication: VITAMIN B12 DEFICIENCY
     Dosage: 1000 UG, Q3MO
     Route: 042
     Dates: start: 20160630
  11. XELODA [Concomitant]
     Active Substance: CAPECITABINE
     Indication: BREAST CANCER
     Dosage: 3000 MG, Q3W
     Route: 048
     Dates: start: 20160728
  12. HUMULIN NOS [Concomitant]
     Active Substance: INSULIN HUMAN
     Dosage: 100 IU, UNK
     Route: 058
     Dates: start: 20160428
  13. HUMULIN NOS [Concomitant]
     Active Substance: INSULIN HUMAN
     Indication: BLOOD GLUCOSE INCREASED

REACTIONS (2)
  - Erysipelas [Recovered/Resolved]
  - Vitamin B12 deficiency [Unknown]

NARRATIVE: CASE EVENT DATE: 20160630
